FAERS Safety Report 10151193 (Version 1)
Quarter: 2014Q2

REPORT INFORMATION
  Report Type: Spontaneous
  Country: US (occurrence: US)
  Receive Date: 20140502
  Receipt Date: 20140502
  Transmission Date: 20141212
  Serious: No
  Sender: FDA-Public Use
  Company Number: US-ASTRAZENECA-2014SE16884

PATIENT
  Age: 69 Year
  Sex: Male

DRUGS (5)
  1. PRILOSEC OTC [Suspect]
     Route: 048
     Dates: start: 20140301, end: 20140304
  2. WARFIN [Interacting]
     Route: 065
  3. ATENOLOL [Concomitant]
  4. BENICAR [Concomitant]
  5. THYROID THERAPY [Concomitant]

REACTIONS (3)
  - Labelled drug-drug interaction medication error [Recovered/Resolved]
  - Dyspepsia [Not Recovered/Not Resolved]
  - Gastrointestinal pain [Not Recovered/Not Resolved]
